FAERS Safety Report 11220148 (Version 1)
Quarter: 2015Q2

REPORT INFORMATION
  Report Type: Spontaneous
  Country: US (occurrence: US)
  Receive Date: 20150625
  Receipt Date: 20150625
  Transmission Date: 20150821
  Serious: No
  Sender: FDA-Public Use
  Company Number: US-009507513-1506USA008885

PATIENT
  Age: 33 Year
  Sex: Female

DRUGS (1)
  1. GANIRELIX ACETATE INJECTION [Suspect]
     Active Substance: GANIRELIX ACETATE
     Indication: ASSISTED FERTILISATION
     Dosage: UNK, ONCE A DAY, STRENGTH REPORTED AS 250 (UNITS NOT PROVIDED)

REACTIONS (6)
  - Syringe issue [Unknown]
  - Drug dose omission [Unknown]
  - Accidental exposure to product [Unknown]
  - Chest discomfort [Unknown]
  - Pleural effusion [Unknown]
  - Product quality issue [Unknown]

NARRATIVE: CASE EVENT DATE: 20150613
